FAERS Safety Report 7470277-7 (Version None)
Quarter: 2011Q2

REPORT INFORMATION
  Report Type: 
  Country: None (occurrence: None)
  Receive Date: 20110510
  Receipt Date: 20110504
  Transmission Date: 20111010
  Serious: Yes (Death)
  Sender: FDA-Public Use
  Company Number: US-CELGENEUS-163-50794-11050763

PATIENT
  Age: 73 Year
  Sex: Male

DRUGS (2)
  1. VIDAZA [Suspect]
     Indication: ACUTE MYELOID LEUKAEMIA
     Dosage: 75 MICROGRAM/SQ. METER
     Route: 065
     Dates: start: 20110325, end: 20110417
  2. MYLOTARG [Suspect]
     Dosage: 3 MILLIGRAM/SQ. METER
     Route: 051
     Dates: start: 20110325, end: 20110418

REACTIONS (1)
  - SUDDEN DEATH [None]
